FAERS Safety Report 10032557 (Version 2)
Quarter: 2014Q1

REPORT INFORMATION
  Report Type: Spontaneous
  Country: US (occurrence: US)
  Receive Date: 20140324
  Receipt Date: 20140324
  Transmission Date: 20141002
  Serious: No
  Sender: FDA-Public Use
  Company Number: US-SHIONOGI, INC-2014000022

PATIENT
  Age: 56 Year
  Sex: Female

DRUGS (2)
  1. OSPHENA [Suspect]
     Indication: DYSPAREUNIA
     Dosage: 60 MG, QD
     Route: 048
     Dates: start: 20140105
  2. OSPHENA [Suspect]
     Indication: VULVOVAGINAL DRYNESS

REACTIONS (3)
  - Back pain [Not Recovered/Not Resolved]
  - Dysmenorrhoea [Not Recovered/Not Resolved]
  - Vaginal discharge [Not Recovered/Not Resolved]
